FAERS Safety Report 5699363-9 (Version None)
Quarter: 2008Q2

REPORT INFORMATION
  Report Type: 
  Country: None (occurrence: None)
  Receive Date: 20080404
  Receipt Date: 20080320
  Transmission Date: 20081010
  Serious: Yes (Other)
  Sender: FDA-Public Use
  Company Number: PHHY2008CA03657

PATIENT
  Age: 75 Year
  Sex: Female

DRUGS (6)
  1. VISUDYNE [Suspect]
     Indication: MACULAR DEGENERATION
  2. AVASTIN [Concomitant]
  3. DYAZIDE [Concomitant]
  4. METFORMIN HCL [Concomitant]
  5. VITAMINS [Concomitant]
  6. CALCIUM [Concomitant]

REACTIONS (2)
  - DISEASE PROGRESSION [None]
  - RETINAL SCAR [None]
